FAERS Safety Report 9851027 (Version 1)
Quarter: 2014Q1

REPORT INFORMATION
  Report Type: Spontaneous
  Country: US (occurrence: US)
  Receive Date: 20140128
  Receipt Date: 20140128
  Transmission Date: 20141002
  Serious: No
  Sender: FDA-Public Use
  Company Number: US-DYAX CORP.-2013DX000136

PATIENT
  Sex: Female
  Weight: 72.64 kg

DRUGS (6)
  1. KALBITOR [Suspect]
     Indication: HEREDITARY ANGIOEDEMA
     Route: 058
     Dates: start: 20130629, end: 20130629
  2. KALBITOR [Suspect]
     Route: 058
     Dates: start: 2012, end: 2012
  3. KALBITOR [Suspect]
     Route: 058
     Dates: start: 201211, end: 201211
  4. KALBITOR [Suspect]
     Route: 058
     Dates: start: 2010
  5. KALBITOR [Suspect]
     Route: 058
     Dates: start: 2013, end: 2013
  6. BIRTH CONTROL [Concomitant]
     Indication: CONTRACEPTION
     Route: 048

REACTIONS (7)
  - Blood pressure increased [Recovered/Resolved]
  - Heart rate increased [Recovered/Resolved]
  - Generalised erythema [Recovered/Resolved]
  - Hyperhidrosis [Recovered/Resolved]
  - Feeling abnormal [Recovered/Resolved]
  - Nausea [Recovered/Resolved]
  - Vomiting [Recovered/Resolved]
